FAERS Safety Report 11330174 (Version 1)
Quarter: 2015Q3

REPORT INFORMATION
  Report Type: Report from Study
  Country: US (occurrence: US)
  Receive Date: 20150803
  Receipt Date: 20150803
  Transmission Date: 20151125
  Serious: Yes (Hospitalization)
  Sender: FDA-Public Use
  Company Number: US-BIOGENIDEC-2015BI105035

PATIENT
  Age: 51 Year
  Sex: Male

DRUGS (8)
  1. BACLOFEN. [Concomitant]
     Active Substance: BACLOFEN
  2. GABAPENTIN. [Concomitant]
     Active Substance: GABAPENTIN
  3. VENLAXINE HCL [Concomitant]
  4. TECFIDERA [Suspect]
     Active Substance: DIMETHYL FUMARATE
     Indication: MULTIPLE SCLEROSIS
     Route: 048
     Dates: start: 201506
  5. OPANA ER [Concomitant]
     Active Substance: OXYMORPHONE HYDROCHLORIDE
  6. MIRALAX [Concomitant]
     Active Substance: POLYETHYLENE GLYCOL 3350
  7. HYDROCODONE [Concomitant]
     Active Substance: HYDROCODONE
  8. CARBAMAZEPINE. [Concomitant]
     Active Substance: CARBAMAZEPINE

REACTIONS (1)
  - Cellulitis [Unknown]

NARRATIVE: CASE EVENT DATE: 20150715
